FAERS Safety Report 6832780-X (Version None)
Quarter: 2010Q3

REPORT INFORMATION
  Report Type: 
  Country: None (occurrence: None)
  Receive Date: 20100712
  Receipt Date: 20070321
  Transmission Date: 20110219
  Serious: No
  Sender: FDA-Public Use
  Company Number: US-PFIZER INC-2007024172

PATIENT
  Sex: Female
  Weight: 47.63 kg

DRUGS (2)
  1. CHANTIX [Suspect]
     Indication: SMOKING CESSATION THERAPY
     Route: 048
     Dates: start: 20070311, end: 20070311
  2. XANAX [Concomitant]
     Route: 048

REACTIONS (6)
  - DIZZINESS [None]
  - DYSGEUSIA [None]
  - NAUSEA [None]
  - TOOTHACHE [None]
  - VISION BLURRED [None]
  - VOMITING [None]
